FAERS Safety Report 8073739-7 (Version None)
Quarter: 2012Q1

REPORT INFORMATION
  Report Type: 
  Country: None (occurrence: None)
  Receive Date: 20120126
  Receipt Date: 20120118
  Transmission Date: 20120608
  Serious: Yes (Hospitalization)
  Sender: FDA-Public Use
  Company Number: CA-ROCHE-1031882

PATIENT
  Sex: Male
  Weight: 90.7 kg

DRUGS (19)
  1. FOLIC ACID [Concomitant]
  2. METHOTREXATE [Concomitant]
  3. CLONIDINE [Concomitant]
  4. NORTRIPTYLINE HCL [Concomitant]
  5. METFORMIN HCL [Concomitant]
  6. MORPHINE SULFATE [Concomitant]
  7. PERINDOPRIL ERBUMINE [Concomitant]
  8. LEFLUNOMIDE [Concomitant]
  9. CALCIUM [Concomitant]
  10. STATEX (CANADA) [Concomitant]
  11. VITAMIN B-12 [Concomitant]
  12. ASCORBIC ACID [Concomitant]
  13. CRESTOR [Concomitant]
  14. HYDROCHLOROTHIAZIDE [Concomitant]
  15. ALENDRONATE SODIUM [Concomitant]
  16. VITAMIN D [Concomitant]
  17. ACTEMRA [Suspect]
     Indication: RHEUMATOID ARTHRITIS
     Route: 042
     Dates: start: 20111220
  18. PREDNISONE TAB [Concomitant]
  19. VITAMIN D [Concomitant]

REACTIONS (1)
  - ARTHRALGIA [None]
